FAERS Safety Report 9732906 (Version 1)
Quarter: 2013Q4

REPORT INFORMATION
  Report Type: Spontaneous
  Country: CH (occurrence: CH)
  Receive Date: 20131205
  Receipt Date: 20131205
  Transmission Date: 20140711
  Serious: Yes (Hospitalization, Other)
  Sender: FDA-Public Use
  Company Number: CH-PFIZER INC-2013341786

PATIENT
  Age: 53 Year
  Sex: Male

DRUGS (4)
  1. ATORVASTATIN CALCIUM [Suspect]
     Indication: HYPERLIPIDAEMIA
     Dosage: 40 MG, 1X/DAY
     Route: 048
     Dates: start: 201306, end: 201310
  2. STELARA [Interacting]
     Indication: PSORIASIS
     Dosage: 1 DF, MONTHLY
     Route: 058
     Dates: start: 201309, end: 201310
  3. ASPIRIN CARDIO [Concomitant]
     Dosage: 100 MG, 1X/DAY
     Route: 048
  4. ATACAND [Concomitant]
     Dosage: 16 MG, 1X/DAY
     Route: 048

REACTIONS (5)
  - Drug interaction [Recovered/Resolved]
  - Arthralgia [Recovered/Resolved]
  - Myalgia [Recovered/Resolved]
  - Antinuclear antibody increased [Unknown]
  - C-reactive protein increased [Unknown]
